FAERS Safety Report 8777475 (Version 1)
Quarter: 2012Q4

REPORT INFORMATION
  Report Type: 
  Country: CZ (occurrence: CZ)
  Receive Date: 20120911
  Receipt Date: 20120911
  Transmission Date: 20130627
  Serious: Yes (Other)
  Sender: FDA-Public Use
  Company Number: CZ-NAPPMUNDI-DEU-2012-0009200

PATIENT
  Sex: Female

DRUGS (3)
  1. OXYCONTIN TABLETS [Suspect]
     Indication: BONE PAIN
     Dosage: 30 mg, daily
     Route: 048
     Dates: start: 20120613
  2. GABAPENTIN [Suspect]
     Indication: PAIN
     Route: 065
  3. VENLAFAXIN [Concomitant]

REACTIONS (4)
  - Visual acuity reduced [Not Recovered/Not Resolved]
  - Vitreous detachment [Not Recovered/Not Resolved]
  - Eye haemorrhage [Not Recovered/Not Resolved]
  - Lenticular opacities [Not Recovered/Not Resolved]
